FAERS Safety Report 12185479 (Version 1)
Quarter: 2016Q1

REPORT INFORMATION
  Report Type: Spontaneous
  Country: AR (occurrence: AR)
  Receive Date: 20160316
  Receipt Date: 20160316
  Transmission Date: 20160526
  Serious: Yes (Other)
  Sender: FDA-Public Use
  Company Number: AR-PFIZER INC-2016157113

PATIENT
  Age: 20 Year
  Sex: Male

DRUGS (1)
  1. GENOTROPIN [Suspect]
     Active Substance: SOMATROPIN
     Indication: GROWTH HORMONE DEFICIENCY
     Dosage: 0.6 TO 1 MG, SIX TIMES PER WEEK
     Dates: start: 20150118

REACTIONS (4)
  - Hypothalamo-pituitary disorder [Unknown]
  - Cerebral cyst [Unknown]
  - Ocular discomfort [Unknown]
  - Optic glioma [Unknown]

NARRATIVE: CASE EVENT DATE: 201602
